FAERS Safety Report 6938666-4 (Version None)
Quarter: 2010Q3

REPORT INFORMATION
  Report Type: 
  Country: None (occurrence: None)
  Receive Date: 20100824
  Receipt Date: 20100810
  Transmission Date: 20110219
  Serious: Yes (Hospitalization, Other)
  Sender: FDA-Public Use
  Company Number: PHHY2010VE50067

PATIENT
  Sex: Female

DRUGS (6)
  1. FEMARA [Suspect]
     Indication: BREAST CANCER
     Dosage: UNK
     Route: 048
     Dates: start: 20030801
  2. FOLIC ACID [Concomitant]
     Dosage: 10 MG, QD
     Dates: start: 20031001
  3. ASCORBIC ACID [Concomitant]
     Dosage: UNK
     Dates: start: 20031001
  4. VITAMIN E [Concomitant]
     Dosage: UNK
     Dates: start: 20031001
  5. CHEMOTHERAPEUTICS NOS [Concomitant]
     Dosage: UNK
     Dates: start: 20030501, end: 20031001
  6. CHEMOTHERAPEUTICS NOS [Concomitant]
     Dosage: UNK
     Dates: end: 20040201

REACTIONS (3)
  - BREAST OPERATION [None]
  - CONJUNCTIVITIS [None]
  - VISUAL ACUITY REDUCED [None]
